FAERS Safety Report 7208355-X (Version None)
Quarter: 2011Q1

REPORT INFORMATION
  Report Type: 
  Country: None (occurrence: None)
  Receive Date: 20110104
  Receipt Date: 20101221
  Transmission Date: 20110831
  Serious: Yes (Other)
  Sender: FDA-Public Use
  Company Number: PHHY2010RO87470

PATIENT
  Age: 62 Year
  Sex: Male

DRUGS (1)
  1. ZOMETA [Suspect]
     Route: 042

REACTIONS (5)
  - CELLULITIS ORBITAL [None]
  - EXOPHTHALMOS [None]
  - OSTEONECROSIS OF JAW [None]
  - PAROPHTHALMIA [None]
  - OCULAR FISTULA [None]
